FAERS Safety Report 19458608 (Version 2)
Quarter: 2022Q1

REPORT INFORMATION
  Report Type: Spontaneous
  Country: US (occurrence: US)
  Receive Date: 20210624
  Receipt Date: 20220311
  Transmission Date: 20220424
  Serious: No
  Sender: FDA-Public Use
  Company Number: US-PFIZER INC-2021608503

PATIENT
  Age: 10 Year
  Sex: Male
  Weight: 27.67 kg

DRUGS (1)
  1. GENOTROPIN [Suspect]
     Active Substance: SOMATROPIN
     Indication: Growth hormone deficiency
     Dosage: 2 MG, DAILY (EVERY EVENING BEFORE BED)
     Dates: start: 2019

REACTIONS (3)
  - Expired device used [Unknown]
  - Overdose [Unknown]
  - Off label use [Unknown]
